FAERS Safety Report 25644471 (Version 2)
Quarter: 2025Q3

REPORT INFORMATION
  Report Type: Spontaneous
  Country: US (occurrence: US)
  Receive Date: 20250805
  Receipt Date: 20250812
  Transmission Date: 20251021
  Serious: Yes (Hospitalization)
  Sender: MERCK SHARP & DOHME LLC
  Company Number: US-009507513-2314448

PATIENT
  Age: 29 Year
  Sex: Male

DRUGS (3)
  1. DAPTOMYCIN [Suspect]
     Active Substance: DAPTOMYCIN
     Indication: Endocarditis staphylococcal
     Route: 042
  2. CEFTAROLINE [Suspect]
     Active Substance: CEFTAROLINE
     Indication: Endocarditis staphylococcal
  3. VANCOMYCIN [Concomitant]
     Active Substance: VANCOMYCIN
     Indication: Endocarditis staphylococcal
     Route: 042

REACTIONS (1)
  - Drug ineffective [Recovered/Resolved]
